FAERS Safety Report 7931724-7 (Version None)
Quarter: 2011Q4

REPORT INFORMATION
  Report Type: 
  Country: None (occurrence: None)
  Receive Date: 20111121
  Receipt Date: 20111116
  Transmission Date: 20120403
  Serious: Yes (Other)
  Sender: FDA-Public Use
  Company Number: PHHY2011BR100941

PATIENT
  Age: 72 Year
  Sex: Male

DRUGS (4)
  1. FORADIL [Suspect]
     Indication: EMPHYSEMA
     Dosage: UNK
  2. FORADIL [Suspect]
     Indication: CHRONIC OBSTRUCTIVE PULMONARY DISEASE
  3. BECLOMETHASONE DIPROPIONATE [Suspect]
     Dosage: 12 YEARS AGO
  4. BECLOMETHASONE DIPROPIONATE [Suspect]
     Dosage: 200 UG, BID

REACTIONS (3)
  - CHRONIC OBSTRUCTIVE PULMONARY DISEASE [None]
  - CONDITION AGGRAVATED [None]
  - EMPHYSEMA [None]
